FAERS Safety Report 9387446 (Version 2)
Quarter: 2013Q3

REPORT INFORMATION
  Report Type: Spontaneous
  Country: US (occurrence: None)
  Receive Date: 20130702
  Receipt Date: 20130717
  Transmission Date: 20140515
  Serious: Yes (Hospitalization, Other)
  Sender: FDA-Public Use
  Company Number: 2012-002979

PATIENT
  Age: 76 Year
  Sex: Female

DRUGS (19)
  1. ACTONEL (RISEDRONATE SODIUM) TABLET, 35MG [Suspect]
     Indication: OSTEOPOROSIS
     Route: 048
  2. FOSAMAX (ALENDRONATE SODIUM) [Suspect]
     Indication: OSTEOPOROSIS
  3. FOSAMAX D [Suspect]
     Indication: OSTEOPOROSIS
  4. ALENDRONATE SODIUM (ALENDRONATE SODIUM) (ALENDRONATE SODIUM) [Suspect]
     Indication: OSTEOPOROSIS
  5. RISEDRONATE SODIUM [Suspect]
     Indication: OSTEOPOROSIS
  6. PRAVACHOL (PRAVASTATIN SODIUM) [Concomitant]
  7. ZOCOR (SIMVASTATIN) [Concomitant]
  8. ASPIRIN (ACETYLSALICYLIC ACID) [Concomitant]
  9. L-THYROXINE /00068801/ (LEVOTHYROXINE) [Concomitant]
  10. PROTONIX (PANTOPRAZOLE SODIUM SESQUIHYDRATE) [Concomitant]
  11. PREVACID (LANSOPRAZOLE) [Concomitant]
  12. RANITIDINE (RANITIDINE) [Concomitant]
  13. ENABLEX /01760401/ (DARIFENACIN) [Concomitant]
  14. OCUVITE LUTEIN (ASCORBIC ACID, CUPRIC OXIDE, TOCOPHERYL ACETATE, XANTOFYL, ZINC OXIDE) [Concomitant]
  15. PRESERVISION EYE VITAMIN AND MINERAL SUPPL. (ASCORBIC ACID, BETACAROTENE, CUPRIC OXIDE, DL-ALPHA TOCOPHERYL ACETATE, ZINC OXIDE) [Concomitant]
  16. COENZYME Q10 (UBIDECARENONE) [Concomitant]
  17. FOLIC ACID (FOLIC ACID) [Concomitant]
  18. VITAMIN C /00008001/ (ASCORBIC ACID) [Concomitant]
  19. OSCAL D /00944201/ (CALCIUM CARBONATE, COLECALCIFEROL) [Concomitant]

REACTIONS (6)
  - Low turnover osteopathy [None]
  - Femur fracture [None]
  - Skeletal injury [None]
  - Pain [None]
  - Stress fracture [None]
  - Osteochondrosis [None]
